FAERS Safety Report 4533595-8 (Version None)
Quarter: 2004Q4

REPORT INFORMATION
  Report Type: 
  Country: None (occurrence: None)
  Receive Date: 20041221
  Receipt Date: 20041214
  Transmission Date: 20050328
  Serious: Yes (Hospitalization)
  Sender: FDA-Public Use
  Company Number: PHRM2004FR03672

PATIENT
  Age: 31 Year
  Sex: Female

DRUGS (3)
  1. PARLODEL [Suspect]
     Indication: HYPOTHALAMO-PITUITARY DISORDERS
     Route: 048
     Dates: start: 19960101, end: 19970731
  2. NORPROLAC ^NOVARTIS^ [Suspect]
     Route: 048
     Dates: start: 19970701, end: 19991031
  3. DOSTINEX [Suspect]
     Dosage: 1 MG, QW
     Route: 048
     Dates: end: 20041109

REACTIONS (3)
  - BREAST NEOPLASM [None]
  - DRUG EXPOSURE DURING PREGNANCY [None]
  - PREGNANCY [None]
